FAERS Safety Report 25962303 (Version 1)
Quarter: 2025Q4

REPORT INFORMATION
  Report Type: Spontaneous
  Country: US (occurrence: None)
  Receive Date: 20251024
  Receipt Date: 20251024
  Transmission Date: 20260118
  Serious: Yes (Life-Threatening, Hospitalization, Disabling)
  Sender: FDA-CTU
  Company Number: None

PATIENT
  Age: 71 Year
  Sex: Female
  Weight: 82 kg

DRUGS (2)
  1. TRIKAFTA [Suspect]
     Active Substance: ELEXACAFTOR\IVACAFTOR\TEZACAFTOR
     Indication: Cystic fibrosis
     Dosage: OTHER FREQUENCY : 2 TABS AM+1 TAB PM;?
     Route: 048
     Dates: start: 20250217, end: 20251008
  2. Rosuvastatin 20mg daily [Concomitant]
     Dates: start: 20250114

REACTIONS (5)
  - Hepatic enzyme increased [None]
  - Acute kidney injury [None]
  - Therapy cessation [None]
  - Haemodialysis [None]
  - Tubulointerstitial nephritis [None]

NARRATIVE: CASE EVENT DATE: 20251007
